FAERS Safety Report 7551841-3 (Version None)
Quarter: 2011Q2

REPORT INFORMATION
  Report Type: 
  Country: None (occurrence: None)
  Receive Date: 20110616
  Receipt Date: 20110608
  Transmission Date: 20111010
  Serious: Yes (Hospitalization)
  Sender: FDA-Public Use
  Company Number: US-ROXANE LABORATORIES, INC.-2011-RO-00802RO

PATIENT
  Sex: Female

DRUGS (2)
  1. FLECAINIDE ACETATE [Suspect]
     Indication: ATRIAL FIBRILLATION
     Dosage: 300 MG
     Route: 048
     Dates: start: 20080424, end: 20080424
  2. DILTIAZEM [Concomitant]
     Indication: ATRIAL FIBRILLATION

REACTIONS (3)
  - OVERDOSE [None]
  - ATRIOVENTRICULAR BLOCK COMPLETE [None]
  - ASPIRATION [None]
